FAERS Safety Report 6312534-3 (Version None)
Quarter: 2009Q3

REPORT INFORMATION
  Report Type: 
  Country: None (occurrence: None)
  Receive Date: 20090817
  Receipt Date: 20090807
  Transmission Date: 20100115
  Serious: Yes (Other)
  Sender: FDA-Public Use
  Company Number: US-PFIZER INC-2009252982

PATIENT
  Sex: Male
  Weight: 113.39 kg

DRUGS (3)
  1. AMLODIPINE BESILATE, ATORVASTATIN CALCIUM [Suspect]
     Dosage: 10MG/10MG ONCE DAILY
  2. AMLODIPINE BESYLATE [Suspect]
  3. ATORVASTATIN CALCIUM [Suspect]

REACTIONS (3)
  - DIABETES MELLITUS [None]
  - MUSCLE ATROPHY [None]
  - VASCULAR GRAFT [None]
